FAERS Safety Report 4574666-X (Version None)
Quarter: 2005Q1

REPORT INFORMATION
  Report Type: 
  Country: None (occurrence: None)
  Receive Date: 20050208
  Receipt Date: 20040615
  Transmission Date: 20050727
  Serious: No
  Sender: FDA-Public Use
  Company Number: US-GLAXOSMITHKLINE-A0516187A

PATIENT
  Sex: Male

DRUGS (1)
  1. PAXIL [Suspect]
     Indication: ANXIETY
     Dosage: 30MG UNKNOWN
     Route: 048
     Dates: start: 19980101

REACTIONS (3)
  - DRUG WITHDRAWAL SYNDROME [None]
  - IRRITABILITY [None]
  - PARAESTHESIA [None]
